FAERS Safety Report 4886255-8 (Version None)
Quarter: 2006Q1

REPORT INFORMATION
  Report Type: 
  Country: None (occurrence: None)
  Receive Date: 20060118
  Receipt Date: 20060105
  Transmission Date: 20060701
  Serious: Yes (Hospitalization, Other)
  Sender: FDA-Public Use
  Company Number: US200601000700

PATIENT
  Age: 88 Year
  Sex: Female

DRUGS (2)
  1. FORTEO [Suspect]
     Dates: start: 20051214
  2. FORTEO PEN (FORTEO PEN)) PEN, DISPOSABLE [Concomitant]

REACTIONS (1)
  - CEREBROVASCULAR ACCIDENT [None]
